FAERS Safety Report 9495367 (Version 1)
Quarter: 2013Q3

REPORT INFORMATION
  Report Type: Spontaneous
  Country: JP (occurrence: JP)
  Receive Date: 20130903
  Receipt Date: 20130903
  Transmission Date: 20140515
  Serious: Yes (Other)
  Sender: FDA-Public Use
  Company Number: JP-GLAXOSMITHKLINE-B0919258A

PATIENT
  Sex: Female

DRUGS (5)
  1. REQUIP [Suspect]
     Indication: PARKINSON^S DISEASE
     Dosage: 10MG PER DAY
     Route: 048
  2. MADOPAR [Concomitant]
     Route: 048
  3. MADOPAR [Concomitant]
     Route: 048
  4. COMTAN [Concomitant]
     Route: 048
  5. AMANTADINE HYDROCHLORIDE [Concomitant]
     Route: 048

REACTIONS (4)
  - Drug dependence [Unknown]
  - Hallucination, visual [Recovered/Resolved]
  - Irritability [Unknown]
  - Drug effect decreased [Unknown]
